FAERS Safety Report 13886287 (Version 7)
Quarter: 2018Q3

REPORT INFORMATION
  Report Type: Report from Study
  Country: US (occurrence: US)
  Receive Date: 20170821
  Receipt Date: 20180801
  Transmission Date: 20181010
  Serious: Yes (Life-Threatening, Hospitalization)
  Sender: FDA-Public Use
  Company Number: US-EISAI MEDICAL RESEARCH-EC-2017-030379

PATIENT
  Age: 65 Year
  Sex: Female
  Weight: 86.5 kg

DRUGS (22)
  1. NEXIUM [Concomitant]
     Active Substance: ESOMEPRAZOLE MAGNESIUM
  2. CALCITRIOL. [Concomitant]
     Active Substance: CALCITRIOL
  3. ASPIRIN. [Concomitant]
     Active Substance: ASPIRIN
  4. ACETAMINOPHEN. [Concomitant]
     Active Substance: ACETAMINOPHEN
  5. NORCO [Concomitant]
     Active Substance: ACETAMINOPHEN\HYDROCODONE BITARTRATE
  6. CLARITIN [Concomitant]
     Active Substance: LORATADINE
  7. DELTASONE [Concomitant]
     Active Substance: PREDNISONE
  8. SINGUILAR [Concomitant]
  9. VITAMIN D3 [Concomitant]
     Active Substance: CHOLECALCIFEROL
  10. SYNTHROID [Concomitant]
     Active Substance: LEVOTHYROXINE SODIUM
  11. LENVATINIB [Suspect]
     Active Substance: LENVATINIB
     Indication: ANAPLASTIC THYROID CANCER
     Route: 048
     Dates: start: 20170413, end: 20170815
  12. MAGNESIUM OXIDE. [Concomitant]
     Active Substance: MAGNESIUM OXIDE
  13. AUGMENTIN [Concomitant]
     Active Substance: AMOXICILLIN\CLAVULANATE POTASSIUM
  14. PROVENTIL [Concomitant]
     Active Substance: ALBUTEROL
  15. LENVATINIB [Suspect]
     Active Substance: LENVATINIB
     Dosage: COMMERCIAL LENVATINIB
     Route: 048
     Dates: start: 20170824, end: 201711
  16. TUMS [Concomitant]
     Active Substance: CALCIUM CARBONATE
  17. PENLAC [Concomitant]
     Active Substance: CICLOPIROX
  18. LENVATINIB [Suspect]
     Active Substance: LENVATINIB
     Dosage: COMMERCIAL LENVATINIB
     Route: 048
     Dates: start: 201711, end: 201802
  19. VALSARTAN/HCT [Concomitant]
     Active Substance: HYDROCHLOROTHIAZIDE\VALSARTAN
  20. BENADRYL [Concomitant]
     Active Substance: DIPHENHYDRAMINE HYDROCHLORIDE
  21. AMARYL [Concomitant]
     Active Substance: GLIMEPIRIDE
  22. FLORASTOR [Concomitant]
     Active Substance: SACCHAROMYCES CEREVISIAE

REACTIONS (3)
  - Perirectal abscess [Recovered/Resolved]
  - Anal fistula [Recovered/Resolved]
  - Bacterial sepsis [Recovered/Resolved]

NARRATIVE: CASE EVENT DATE: 20170815
